FAERS Safety Report 5632784-9 (Version None)
Quarter: 2008Q1

REPORT INFORMATION
  Report Type: 
  Country: None (occurrence: None)
  Receive Date: 20080221
  Receipt Date: 20080213
  Transmission Date: 20080703
  Serious: Yes (Other)
  Sender: FDA-Public Use
  Company Number: ZA-JNJFOC-20080202974

PATIENT
  Age: 30 Year
  Sex: Female

DRUGS (2)
  1. TRAMACET [Suspect]
     Indication: GASTRITIS
     Route: 065
  2. TRAMACET [Suspect]
     Indication: RICKETTSIOSIS
     Route: 065

REACTIONS (3)
  - DYSKINESIA [None]
  - HALLUCINATION [None]
  - TREMOR [None]
